FAERS Safety Report 6993762-0 (Version None)
Quarter: 2010Q3

REPORT INFORMATION
  Report Type: 
  Country: None (occurrence: None)
  Receive Date: 20100917
  Receipt Date: 20100615
  Transmission Date: 20110219
  Serious: Yes (Hospitalization)
  Sender: FDA-Public Use
  Company Number: US-ASTRAZENECA-2010SE27794

PATIENT
  Age: 25 Year
  Sex: Male
  Weight: 117.9 kg

DRUGS (7)
  1. SEROQUEL [Suspect]
     Indication: SCHIZOPHRENIA
     Route: 048
  2. SEROQUEL [Suspect]
     Indication: BIPOLAR DISORDER
     Route: 048
  3. SEROQUEL [Suspect]
     Route: 048
  4. SEROQUEL [Suspect]
     Route: 048
  5. LITHIUM CARBONATE [Concomitant]
  6. TRAZODONE HCL [Concomitant]
  7. CELEXA [Concomitant]

REACTIONS (2)
  - OVERDOSE [None]
  - SUICIDE ATTEMPT [None]
